FAERS Safety Report 5290174-5 (Version None)
Quarter: 2007Q2

REPORT INFORMATION
  Report Type: 
  Country: None (occurrence: None)
  Receive Date: 20070402
  Receipt Date: 20070327
  Transmission Date: 20071010
  Serious: Yes (Death, Hospitalization)
  Sender: FDA-Public Use
  Company Number: 238593

PATIENT
  Age: 54 Year
  Sex: Male

DRUGS (8)
  1. AVASTIN [Suspect]
     Indication: HEPATIC NEOPLASM MALIGNANT
     Dosage: 10 MG/KG, Q2W, INTRAVENOUS
     Route: 042
     Dates: start: 20070221
  2. ERLOTINIB (ERLOTINIB) TABLET [Suspect]
     Indication: HEPATIC NEOPLASM MALIGNANT
     Dosage: 150 MG, QD, ORAL
     Route: 048
     Dates: start: 20070307
  3. MARINOL [Concomitant]
  4. ATENOLOL [Concomitant]
  5. NEXIUM [Concomitant]
  6. SENOKOT [Concomitant]
  7. FENTANYL PATCH (FENTANYL CITRATE) [Concomitant]
  8. ACTIQ [Concomitant]

REACTIONS (1)
  - HALLUCINATION [None]
